APPROVED DRUG PRODUCT: LINEZOLID
Active Ingredient: LINEZOLID
Strength: 600MG/300ML (2MG/ML)
Dosage Form/Route: SOLUTION;INTRAVENOUS
Application: A206917 | Product #001 | TE Code: AP
Applicant: EUGIA PHARMA SPECIALITIES LTD
Approved: Aug 4, 2016 | RLD: No | RS: No | Type: RX